FAERS Safety Report 4389103-8 (Version None)
Quarter: 2004Q2

REPORT INFORMATION
  Report Type: 
  Country: None (occurrence: None)
  Receive Date: 20040628
  Receipt Date: 20040615
  Transmission Date: 20050107
  Serious: Yes (Death, Hospitalization)
  Sender: FDA-Public Use
  Company Number: 2004UW10166

PATIENT
  Age: 75 Year
  Sex: Female

DRUGS (9)
  1. SEROQUEL [Suspect]
     Dates: end: 20040301
  2. NORVASC [Concomitant]
  3. ASPIRIN [Concomitant]
  4. KLONOPIN [Concomitant]
  5. ARICEPT [Concomitant]
  6. SYNTHROID [Concomitant]
  7. THERAVITE [Concomitant]
  8. ISOSOURCE [Concomitant]
  9. BETA PROTEIN [Concomitant]

REACTIONS (12)
  - ACUTE PRERENAL FAILURE [None]
  - ALANINE AMINOTRANSFERASE INCREASED [None]
  - ASPARTATE AMINOTRANSFERASE INCREASED [None]
  - BLOOD ALKALINE PHOSPHATASE INCREASED [None]
  - DISEASE PROGRESSION [None]
  - ESCHERICHIA URINARY TRACT INFECTION [None]
  - HYPOXIA [None]
  - PERICARDIAL EFFUSION [None]
  - PNEUMONIA [None]
  - PNEUMONIA ASPIRATION [None]
  - SCLERODERMA [None]
  - URINARY TRACT INFECTION FUNGAL [None]
